FAERS Safety Report 24939132 (Version 2)
Quarter: 2025Q2

REPORT INFORMATION
  Report Type: Spontaneous
  Country: US (occurrence: US)
  Receive Date: 20250206
  Receipt Date: 20250424
  Transmission Date: 20250717
  Serious: Yes (Other)
  Sender: PFIZER
  Company Number: US-PFIZER INC-PV202500014206

PATIENT
  Age: 39 Year
  Sex: Female

DRUGS (1)
  1. TUKYSA [Suspect]
     Active Substance: TUCATINIB
     Dosage: 150 MG TAKE 2 TABLET TWICE DAILY

REACTIONS (3)
  - Second primary malignancy [Unknown]
  - Brain neoplasm [Unknown]
  - Memory impairment [Unknown]
